FAERS Safety Report 9901216 (Version 5)
Quarter: 2015Q2

REPORT INFORMATION
  Report Type: Spontaneous
  Country: JP (occurrence: JP)
  Receive Date: 20140217
  Receipt Date: 20150417
  Transmission Date: 20150821
  Serious: Yes (Hospitalization)
  Sender: FDA-Public Use
  Company Number: JP-009507513-1402JPN005603

PATIENT
  Age: 18 Month
  Sex: Female

DRUGS (4)
  1. DIAZOXIDE [Suspect]
     Active Substance: DIAZOXIDE
     Dosage: DIVIDED DOSE FREQUENCY UNKNOWN
     Route: 048
  2. DIAZOXIDE [Suspect]
     Active Substance: DIAZOXIDE
     Dosage: DIVIDED DOSE FREQUENCY UNKNOWN
     Route: 048
  3. DIAZOXIDE [Suspect]
     Active Substance: DIAZOXIDE
     Dosage: DIVIDED DOSE FREQUENCY UNKNOWN
     Route: 048
  4. DIAZOXIDE [Suspect]
     Active Substance: DIAZOXIDE
     Dosage: DIVIDED DOSE FREQUENCY UNKNOWN
     Route: 048

REACTIONS (1)
  - Neutropenia [Recovered/Resolved]
